FAERS Safety Report 17698872 (Version 1)
Quarter: 2020Q2

REPORT INFORMATION
  Report Type: Spontaneous
  Country: US (occurrence: US)
  Receive Date: 20200423
  Receipt Date: 20200423
  Transmission Date: 20200714
  Serious: No
  Sender: FDA-Public Use
  Company Number: US-MSNLABS-2020MSNSPO00059

PATIENT

DRUGS (1)
  1. PREGABALIN CAPSULES 200 MG [Suspect]
     Active Substance: PREGABALIN
     Indication: NEUROPATHY PERIPHERAL
     Route: 065

REACTIONS (10)
  - Balance disorder [Unknown]
  - Product use in unapproved indication [Unknown]
  - Vertigo [Unknown]
  - Sleep disorder [Unknown]
  - Product substitution issue [Unknown]
  - Panic attack [Unknown]
  - Depression [Unknown]
  - Fatigue [Unknown]
  - Ventricular extrasystoles [Recovered/Resolved]
  - Myalgia [Unknown]
